FAERS Safety Report 10024013 (Version 1)
Quarter: 2014Q1

REPORT INFORMATION
  Report Type: Spontaneous
  Country: GB (occurrence: GB)
  Receive Date: 20140320
  Receipt Date: 20140320
  Transmission Date: 20141002
  Serious: Yes (Other)
  Sender: FDA-Public Use
  Company Number: GB-NOVOPROD-402666

PATIENT
  Age: 68 Year
  Sex: Female
  Weight: 86 kg

DRUGS (1)
  1. VAGIFEM 10 MICROGRAMS [Suspect]
     Indication: VULVOVAGINAL DRYNESS
     Dosage: 10 ?G, UNK
     Route: 067
     Dates: start: 20140208, end: 20140222

REACTIONS (4)
  - Migraine [Recovering/Resolving]
  - Photopsia [Recovering/Resolving]
  - Vomiting [Recovering/Resolving]
  - Headache [Recovering/Resolving]
